FAERS Safety Report 20695272 (Version 1)
Quarter: 2022Q2

REPORT INFORMATION
  Report Type: Spontaneous
  Country: US (occurrence: US)
  Receive Date: 20220411
  Receipt Date: 20220411
  Transmission Date: 20220721
  Serious: Yes (Hospitalization)
  Sender: FDA-Public Use
  Company Number: US-MYLANLABS-2022M1025389

PATIENT
  Age: 70 Year
  Sex: Female

DRUGS (4)
  1. METOPROLOL [Interacting]
     Active Substance: METOPROLOL
     Indication: Cardiac failure
     Dosage: UNK
     Route: 065
  2. DEXAMETHASONE [Suspect]
     Active Substance: DEXAMETHASONE
     Indication: COVID-19 pneumonia
     Dosage: UNK
     Route: 065
  3. REMDESIVIR [Interacting]
     Active Substance: REMDESIVIR
     Indication: COVID-19 pneumonia
     Dosage: 200 MILLIGRAM; LOADING DOSE
     Route: 065
  4. REMDESIVIR [Interacting]
     Active Substance: REMDESIVIR
     Dosage: UNK; SEVERAL MAINTAINANCE DOSES
     Route: 065

REACTIONS (4)
  - Drug interaction [Recovered/Resolved]
  - Sinus bradycardia [Recovered/Resolved]
  - Atrioventricular block second degree [Recovered/Resolved]
  - Off label use [Unknown]
